FAERS Safety Report 5708914-7 (Version None)
Quarter: 2008Q2

REPORT INFORMATION
  Report Type: 
  Country: None (occurrence: None)
  Receive Date: 20080416
  Receipt Date: 20080407
  Transmission Date: 20081010
  Serious: Yes (Hospitalization, Other)
  Sender: FDA-Public Use
  Company Number: 2008AP000816

PATIENT
  Age: 57 Year
  Sex: Male

DRUGS (3)
  1. CARBIDOPA AND LEVODOPA [Suspect]
     Indication: PARKINSON'S DISEASE
  2. PRAMIPEXOLE DIHYDROCHLORIDE [Concomitant]
  3. BENZATROPINE [Concomitant]

REACTIONS (5)
  - DELUSION OF REPLACEMENT [None]
  - FEAR [None]
  - HALLUCINATION, VISUAL [None]
  - NO THERAPEUTIC RESPONSE [None]
  - PSYCHOTIC DISORDER [None]
